FAERS Safety Report 13168767 (Version 1)
Quarter: 2017Q1

REPORT INFORMATION
  Report Type: Spontaneous
  Country: US (occurrence: US)
  Receive Date: 20170131
  Receipt Date: 20170131
  Transmission Date: 20170428
  Serious: Yes (Other)
  Sender: FDA-Public Use
  Company Number: US-NOVOPROD-516136

PATIENT
  Age: 70 Year
  Sex: Female
  Weight: 57 kg

DRUGS (4)
  1. NOVOSEVEN RT [Suspect]
     Active Substance: COAGULATION FACTOR VIIA RECOMBINANT HUMAN
     Indication: CONGENITAL THROMBOCYTE DISORDER
     Dosage: 90 MCG/KG EVERY 2 HOURS
     Route: 042
     Dates: start: 20160930, end: 20161003
  2. NOVOSEVEN RT [Suspect]
     Active Substance: COAGULATION FACTOR VIIA RECOMBINANT HUMAN
     Indication: PROCOAGULANT THERAPY
     Dosage: 90 ?G/KG, BID/EVERY 12 HOURS
     Route: 042
     Dates: start: 20161004, end: 20161006
  3. AMICAR [Concomitant]
     Active Substance: AMINOCAPROIC ACID
     Indication: PROCOAGULANT THERAPY
     Dosage: 24 G, QD
     Route: 042
     Dates: start: 20160930, end: 20161003
  4. LYSTEDA [Concomitant]
     Active Substance: TRANEXAMIC ACID
     Indication: PROCOAGULANT THERAPY
     Dosage: 1300 MG, TID
     Route: 048
     Dates: start: 20161004, end: 20161006

REACTIONS (2)
  - Pulmonary embolism [Recovered/Resolved]
  - Fibrin D dimer increased [None]

NARRATIVE: CASE EVENT DATE: 20161006
